FAERS Safety Report 9720439 (Version 1)
Quarter: 2013Q4

REPORT INFORMATION
  Report Type: Spontaneous
  Country: FI (occurrence: FI)
  Receive Date: 20131129
  Receipt Date: 20131129
  Transmission Date: 20140711
  Serious: Yes (Other)
  Sender: FDA-Public Use
  Company Number: FI-JNJFOC-20131113522

PATIENT
  Age: 46 Year
  Sex: Male

DRUGS (4)
  1. REMICADE [Suspect]
     Indication: CROHN^S DISEASE
     Route: 042
     Dates: start: 20010712, end: 20130730
  2. AZATHIOPRINE [Suspect]
     Indication: CROHN^S DISEASE
     Dosage: STOPPED ON AN UNSPECIFIED DATE IN 2008 - 2009
     Route: 065
  3. 5-ASA [Suspect]
     Indication: CROHN^S DISEASE
     Dosage: STOPPED ON AN UNSPECIFIED DATE IN 2008 - 2009
     Route: 065
     Dates: end: 2009
  4. TRIO-BE [Concomitant]
     Indication: VITAMIN B12 DEFICIENCY
     Route: 048
     Dates: start: 20130211

REACTIONS (2)
  - Small intestine adenocarcinoma [Unknown]
  - Metastases to lymph nodes [Unknown]
